FAERS Safety Report 18376606 (Version 1)
Quarter: 2020Q4

REPORT INFORMATION
  Report Type: Spontaneous
  Country: US (occurrence: US)
  Receive Date: 20201012
  Receipt Date: 20201012
  Transmission Date: 20210114
  Serious: Yes (Other)
  Sender: FDA-Public Use
  Company Number: None

PATIENT
  Age: 62 Year
  Sex: Female

DRUGS (3)
  1. MAYZENT [Suspect]
     Active Substance: SIPONIMOD
     Indication: MULTIPLE SCLEROSIS
     Route: 048
     Dates: start: 20200707
  2. N/A [Concomitant]
     Active Substance: UNSPECIFIED INGREDIENT
  3. DALFAMPRIDINE ER [Suspect]
     Active Substance: DALFAMPRIDINE
     Indication: MULTIPLE SCLEROSIS
     Route: 048
     Dates: start: 20200226

REACTIONS (4)
  - Multiple sclerosis relapse [None]
  - Hemiplegia [None]
  - Peroneal nerve palsy [None]
  - Hemianaesthesia [None]

NARRATIVE: CASE EVENT DATE: 20200701
